FAERS Safety Report 5975388-0 (Version None)
Quarter: 2008Q4

REPORT INFORMATION
  Report Type: 
  Country: None (occurrence: None)
  Receive Date: 20081202
  Receipt Date: 20080125
  Transmission Date: 20090506
  Serious: Yes (Hospitalization, Other)
  Sender: FDA-Public Use
  Company Number: US-AMGEN-QUU259911

PATIENT
  Sex: Male

DRUGS (9)
  1. ENBREL [Suspect]
     Indication: PSORIASIS
     Route: 058
     Dates: start: 20070501, end: 20080101
  2. LANTUS [Concomitant]
     Route: 058
  3. INSULIN [Concomitant]
  4. HUMALOG [Concomitant]
     Route: 058
  5. ACTOS [Concomitant]
  6. ATENOLOL [Concomitant]
  7. DETROL [Concomitant]
     Route: 048
  8. LOTREL [Concomitant]
     Route: 048
  9. VYTORIN [Concomitant]
     Route: 048

REACTIONS (3)
  - ABDOMINAL WALL ABSCESS [None]
  - FURUNCLE [None]
  - STAPHYLOCOCCAL INFECTION [None]
